FAERS Safety Report 21814047 (Version 1)
Quarter: 2023Q1

REPORT INFORMATION
  Report Type: Report from Study
  Country: US (occurrence: US)
  Receive Date: 20230104
  Receipt Date: 20230104
  Transmission Date: 20230418
  Serious: No
  Sender: FDA-Public Use
  Company Number: US-ABBVIE-4218549

PATIENT
  Sex: Female

DRUGS (2)
  1. SKYRIZI [Suspect]
     Active Substance: RISANKIZUMAB-RZAA
     Indication: Psoriasis
     Dosage: WEEK 4 AND THEN EVERY 12 WEEKS
     Route: 058
     Dates: start: 20221007
  2. SKYRIZI [Suspect]
     Active Substance: RISANKIZUMAB-RZAA
     Dosage: WEEK 0
     Route: 058
     Dates: start: 20220602, end: 20220602

REACTIONS (5)
  - Influenza [Recovered/Resolved]
  - Mobility decreased [Unknown]
  - Off label use [Unknown]
  - Sleep deficit [Unknown]
  - Psoriasis [Not Recovered/Not Resolved]
